FAERS Safety Report 5023614-7 (Version None)
Quarter: 2006Q2

REPORT INFORMATION
  Report Type: 
  Country: None (occurrence: None)
  Receive Date: 20060606
  Receipt Date: 20060523
  Transmission Date: 20061013
  Serious: Yes (Hospitalization, Disabling, Other)
  Sender: FDA-Public Use
  Company Number: 2005_000043

PATIENT
  Age: 47 Year
  Sex: Female
  Weight: 56 kg

DRUGS (5)
  1. DEPOCYT [Suspect]
     Indication: NON-HODGKIN'S LYMPHOMA
     Dosage: 50 MG; X1; INTH
     Route: 037
     Dates: start: 20050414, end: 20050414
  2. METHOTREXATE [Concomitant]
  3. CYTARABINE [Concomitant]
  4. ADIURETINE [Concomitant]
  5. FRAGMIN [Concomitant]

REACTIONS (14)
  - ABASIA [None]
  - COORDINATION ABNORMAL [None]
  - CYSTITIS [None]
  - DRUG TOXICITY [None]
  - GAIT DISTURBANCE [None]
  - MYELOPATHY [None]
  - NEUROTOXICITY [None]
  - PARALYSIS FLACCID [None]
  - PARESIS [None]
  - PERIPHERAL SENSORY NEUROPATHY [None]
  - PYRAMIDAL TRACT SYNDROME [None]
  - RESIDUAL URINE VOLUME [None]
  - UPPER MOTOR NEURONE LESION [None]
  - URINARY RETENTION [None]
